FAERS Safety Report 7769649-2 (Version None)
Quarter: 2011Q3

REPORT INFORMATION
  Report Type: 
  Country: None (occurrence: None)
  Receive Date: 20110922
  Receipt Date: 20110323
  Transmission Date: 20111222
  Serious: No
  Sender: FDA-Public Use
  Company Number: US-ASTRAZENECA-2011SE16392

PATIENT
  Age: 88 Year
  Sex: Female
  Weight: 53.5 kg

DRUGS (9)
  1. VIT.E [Concomitant]
     Indication: PROPHYLAXIS
  2. COUMADIN [Concomitant]
     Indication: CEREBROVASCULAR ACCIDENT
  3. COLACE [Concomitant]
  4. SEROQUEL [Suspect]
     Route: 048
  5. PEPCID [Concomitant]
  6. FISH OIL [Concomitant]
     Indication: PROPHYLAXIS
  7. SEROQUEL [Suspect]
     Route: 048
  8. MULTI-VITAMIN [Concomitant]
     Indication: PROPHYLAXIS
  9. ASPIRIN [Concomitant]

REACTIONS (2)
  - ASTHENIA [None]
  - INCORRECT DOSE ADMINISTERED [None]
